FAERS Safety Report 8156470-9 (Version None)
Quarter: 2012Q1

REPORT INFORMATION
  Report Type: 
  Country: None (occurrence: None)
  Receive Date: 20120220
  Receipt Date: 20120220
  Transmission Date: 20120608
  Serious: No
  Sender: FDA-Public Use
  Company Number: None

PATIENT
  Sex: Female

DRUGS (1)
  1. PROMACTA [Suspect]
     Dosage: 50 MG PO TAKE 1 TABLET BY MOUTH EVERY DAY
     Route: 048

REACTIONS (3)
  - MUSCLE SPASMS [None]
  - RASH [None]
  - PRURITUS [None]
